FAERS Safety Report 6876061-7 (Version None)
Quarter: 2010Q3

REPORT INFORMATION
  Report Type: 
  Country: None (occurrence: None)
  Receive Date: 20100727
  Receipt Date: 20100719
  Transmission Date: 20110219
  Serious: Yes (Hospitalization)
  Sender: FDA-Public Use
  Company Number: ZM-MERCK-1007USA02171

PATIENT
  Sex: Female

DRUGS (4)
  1. ISENTRESS [Suspect]
     Indication: HIV INFECTION
     Route: 048
  2. RIFAMPIN [Concomitant]
     Indication: TUBERCULOSIS
     Route: 065
  3. STREPTOMYCIN [Concomitant]
     Route: 065
  4. TRUVADA [Concomitant]
     Route: 065

REACTIONS (3)
  - DIARRHOEA [None]
  - JAUNDICE [None]
  - RENAL IMPAIRMENT [None]
